FAERS Safety Report 14652678 (Version 4)
Quarter: 2020Q2

REPORT INFORMATION
  Report Type: Report from Study
  Country: US (occurrence: US)
  Receive Date: 20180319
  Receipt Date: 20200521
  Transmission Date: 20200713
  Serious: Yes (Hospitalization, Other)
  Sender: FDA-Public Use
  Company Number: US-ALEXION PHARMACEUTICALS INC.-A201802791

PATIENT
  Sex: Female

DRUGS (3)
  1. SOLIRIS [Suspect]
     Active Substance: ECULIZUMAB
     Dosage: 900 MG, Q2W
     Route: 042
  2. SOLIRIS [Suspect]
     Active Substance: ECULIZUMAB
     Indication: PAROXYSMAL NOCTURNAL HAEMOGLOBINURIA
     Dosage: UNK
     Route: 065
  3. DEXAMETHASONE. [Concomitant]
     Active Substance: DEXAMETHASONE
     Indication: BACK PAIN
     Dosage: 4 MG, UNK
     Route: 065

REACTIONS (11)
  - Ocular icterus [Unknown]
  - Dysphagia [Unknown]
  - Headache [Unknown]
  - Back pain [Unknown]
  - Fatigue [Unknown]
  - Chromaturia [Unknown]
  - Infusion related reaction [Unknown]
  - Condition aggravated [Unknown]
  - Pain [Unknown]
  - Haemoglobin decreased [Unknown]
  - Muscle spasms [Unknown]

NARRATIVE: CASE EVENT DATE: 2018
